FAERS Safety Report 4665700-7 (Version None)
Quarter: 2005Q2

REPORT INFORMATION
  Report Type: 
  Country: None (occurrence: None)
  Receive Date: 20050517
  Receipt Date: 20050503
  Transmission Date: 20051028
  Serious: Yes (Disabling, Other)
  Sender: FDA-Public Use
  Company Number: USA050597163

PATIENT
  Age: 44 Year
  Sex: Female
  Weight: 85 kg

DRUGS (14)
  1. PROZAC [Suspect]
     Indication: NERVOUSNESS
     Dosage: 40 MG
  2. PREMARIN [Concomitant]
  3. ARICEPT [Concomitant]
  4. TRAMADOL [Concomitant]
  5. DIAZEPAM [Concomitant]
  6. VITAMIN B-12 [Concomitant]
  7. OXYBUTON (OXYBUTYNIN HYDROCHLORIDE) [Concomitant]
  8. TRAZADONE (TRAZODONE) [Concomitant]
  9. IRON [Concomitant]
  10. NEURONTIN (GABAPENTIN PFIZER) [Concomitant]
  11. CARISOPRODOL [Concomitant]
  12. PERCOCET [Concomitant]
  13. FLONASE [Concomitant]
  14. PHENAZOPYRADINE [Concomitant]

REACTIONS (6)
  - ANXIETY [None]
  - DEPRESSION [None]
  - DRUG DISPENSING ERROR [None]
  - MULTIPLE SCLEROSIS [None]
  - PHARMACEUTICAL PRODUCT COMPLAINT [None]
  - UNEVALUABLE EVENT [None]
